FAERS Safety Report 10056619 (Version 2)
Quarter: 2014Q2

REPORT INFORMATION
  Report Type: Spontaneous
  Country: JP (occurrence: JP)
  Receive Date: 20140403
  Receipt Date: 20140512
  Transmission Date: 20141212
  Serious: Yes (Hospitalization)
  Sender: FDA-Public Use
  Company Number: JP-OTSUKA-JP-2014-12867

PATIENT
  Sex: Male

DRUGS (4)
  1. SAMSCA [Suspect]
     Indication: OEDEMA DUE TO CARDIAC DISEASE
     Dosage: 3.75 MG MILLIGRAM(S), DAILY DOSE
     Route: 048
     Dates: start: 201403, end: 20140326
  2. SAMSCA [Suspect]
     Dosage: 7.5 MG MILLIGRAM(S), DAILY DOSE
     Route: 048
     Dates: start: 20140327
  3. ALDACTONE A [Suspect]
     Indication: PRODUCT USED FOR UNKNOWN INDICATION
     Route: 048
  4. LASIX [Suspect]
     Indication: PRODUCT USED FOR UNKNOWN INDICATION
     Route: 048

REACTIONS (2)
  - Blood sodium decreased [Unknown]
  - Hyperkalaemia [Unknown]
